FAERS Safety Report 15574848 (Version 1)
Quarter: 2018Q4

REPORT INFORMATION
  Report Type: Spontaneous
  Country: US (occurrence: US)
  Receive Date: 20181101
  Receipt Date: 20181101
  Transmission Date: 20190205
  Serious: No
  Sender: FDA-Public Use
  Company Number: US-LUPIN PHARMACEUTICALS INC.-2018-04872

PATIENT
  Sex: Female

DRUGS (2)
  1. LISINOPRIL TABLETS USP, 5MG [Suspect]
     Active Substance: LISINOPRIL
     Indication: HYPERTENSION
     Dosage: UNK
     Route: 065
  2. LISINOPRIL TABLETS USP, 5MG [Suspect]
     Active Substance: LISINOPRIL
     Dosage: 20 MG, UNK
     Route: 065

REACTIONS (10)
  - General physical health deterioration [Unknown]
  - Headache [Unknown]
  - Ear disorder [Unknown]
  - Drug ineffective [Unknown]
  - Gastric disorder [Unknown]
  - Eye disorder [Unknown]
  - Weight increased [Unknown]
  - Skin disorder [Unknown]
  - Loss of personal independence in daily activities [Unknown]
  - Alopecia [Unknown]
